FAERS Safety Report 6632212-0 (Version None)
Quarter: 2010Q1

REPORT INFORMATION
  Report Type: 
  Country: None (occurrence: None)
  Receive Date: 20100312
  Receipt Date: 20100304
  Transmission Date: 20100710
  Serious: Yes (Other)
  Sender: FDA-Public Use
  Company Number: BR-BRISTOL-MYERS SQUIBB COMPANY-15009210

PATIENT
  Age: 20 Year
  Sex: Female
  Weight: 78 kg

DRUGS (2)
  1. ABILIFY [Suspect]
     Indication: BIPOLAR DISORDER
     Dates: start: 20100101
  2. LITHIUM [Suspect]
     Dosage: INITIATED 7MONTHS AGO
     Dates: start: 20090101

REACTIONS (5)
  - ASTHMA [None]
  - DEPRESSION [None]
  - INSOMNIA [None]
  - MUSCLE RIGIDITY [None]
  - MUSCLE TIGHTNESS [None]
